FAERS Safety Report 12656016 (Version 1)
Quarter: 2016Q3

REPORT INFORMATION
  Report Type: Spontaneous
  Country: US (occurrence: US)
  Receive Date: 20160816
  Receipt Date: 20160816
  Transmission Date: 20161109
  Serious: No
  Sender: FDA-Public Use
  Company Number: US-ROCHE-1781234

PATIENT
  Sex: Male

DRUGS (1)
  1. PEGASYS [Suspect]
     Active Substance: PEGINTERFERON ALFA-2A
     Indication: MYELOPROLIFERATIVE NEOPLASM
     Dosage: STRENGTH: 180MCG/0.5ML
     Route: 058

REACTIONS (4)
  - Anorectal discomfort [Unknown]
  - Rash [Recovered/Resolved]
  - Swelling [Unknown]
  - Pruritus [Unknown]
